FAERS Safety Report 9955775 (Version 1)
Quarter: 2014Q1

REPORT INFORMATION
  Report Type: Report from Study
  Country: US (occurrence: US)
  Receive Date: 20140304
  Receipt Date: 20140304
  Transmission Date: 20141002
  Serious: Yes (Hospitalization)
  Sender: FDA-Public Use
  Company Number: US-ABBVIE-14P-163-1205753-00

PATIENT
  Age: 22 Year
  Sex: Male

DRUGS (2)
  1. HUMIRA [Suspect]
     Indication: CROHN^S DISEASE
     Dosage: LOADING DOSE
     Dates: start: 201307
  2. HUMIRA [Suspect]
     Dosage: LOADING DOSE
     Dates: start: 2013

REACTIONS (4)
  - Muscle disorder [Unknown]
  - Abdominal pain [Recovered/Resolved]
  - Abscess [Recovering/Resolving]
  - Abdominal pain [Recovered/Resolved]
